FAERS Safety Report 23892398 (Version 1)
Quarter: 2024Q2

REPORT INFORMATION
  Report Type: Spontaneous
  Country: US (occurrence: None)
  Receive Date: 20240524
  Receipt Date: 20240524
  Transmission Date: 20240715
  Serious: No
  Sender: FDA-Public Use
  Company Number: US-ROCHE-3498359

PATIENT
  Sex: Female

DRUGS (1)
  1. OCREVUS [Suspect]
     Active Substance: OCRELIZUMAB
     Indication: Relapsing multiple sclerosis
     Dosage: HER FIRST 600 MG INFUSION OF OCREVUS (INFUSION 3, DOSE 2), HER SECOND 600 MG INFUSION OF OCREVUS (IN
     Route: 042

REACTIONS (1)
  - Infusion related reaction [Unknown]
